FAERS Safety Report 8335518 (Version 3)
Quarter: 2013Q3

REPORT INFORMATION
  Report Type: Report from Study
  Country: CA (occurrence: CA)
  Receive Date: 20120113
  Receipt Date: 20130729
  Transmission Date: 20140515
  Serious: Yes (Other)
  Sender: FDA-Public Use
  Company Number: CA-BRISTOL-MYERS SQUIBB COMPANY-16337099

PATIENT
  Age: 70 Year
  Sex: Female

DRUGS (7)
  1. SAXAGLIPTIN [Suspect]
     Indication: TYPE 2 DIABETES MELLITUS
     Dosage: LAST DOSE 19FEB13.
     Dates: start: 20101125
  2. ASA [Concomitant]
  3. EZETIMIBE [Concomitant]
  4. SYNTHROID [Concomitant]
     Indication: HYPOTHYROIDISM
     Route: 048
  5. FERROUS SULFATE [Concomitant]
     Indication: ANAEMIA
     Route: 048
  6. PREVACID [Concomitant]
     Indication: GASTROOESOPHAGEAL REFLUX DISEASE
     Route: 048
  7. ASPIRIN [Concomitant]

REACTIONS (1)
  - Angioedema [Recovered/Resolved]
